FAERS Safety Report 8947151 (Version 1)
Quarter: 2012Q4

REPORT INFORMATION
  Report Type: 
  Country: US (occurrence: US)
  Receive Date: 20121205
  Receipt Date: 20121205
  Transmission Date: 20130627
  Serious: Yes (Other)
  Sender: FDA-Public Use
  Company Number: US-PFIZER INC-2012305095

PATIENT
  Age: 65 Year
  Sex: Female
  Weight: 65.31 kg

DRUGS (3)
  1. CHANTIX [Suspect]
     Indication: SMOKING CESSATION THERAPY
     Dosage: UNK
     Dates: start: 2012, end: 2012
  2. LISINOPRIL [Concomitant]
     Indication: BLOOD PRESSURE HIGH
     Dosage: UNK
  3. AGGRENOX [Concomitant]
     Indication: ANTICOAGULANT THERAPY
     Dosage: ^200^ mg twice a day

REACTIONS (2)
  - Hallucination [Recovered/Resolved]
  - Vomiting [Recovered/Resolved]
